FAERS Safety Report 19846696 (Version 1)
Quarter: 2021Q3

REPORT INFORMATION
  Report Type: Spontaneous
  Country: GB (occurrence: GB)
  Receive Date: 20210917
  Receipt Date: 20210917
  Transmission Date: 20211014
  Serious: Yes (Life-Threatening, Hospitalization)
  Sender: FDA-Public Use
  Company Number: GB-ACCORD-238464

PATIENT
  Age: 64 Year
  Sex: Male

DRUGS (12)
  1. DIGOXIN. [Suspect]
     Active Substance: DIGOXIN
     Indication: ATRIAL FIBRILLATION
     Dosage: 125 MICROGRAMS
     Route: 048
     Dates: start: 201908
  2. SPIRONOLACTONE. [Suspect]
     Active Substance: SPIRONOLACTONE
     Indication: HYPERALDOSTERONISM
     Dosage: 50MG OD
     Dates: start: 201307, end: 202106
  3. SANDO K [Concomitant]
  4. APIXABAN [Concomitant]
     Active Substance: APIXABAN
  5. CODEINE PHOSPHATE/PARACETAMOL [Concomitant]
     Active Substance: ACETAMINOPHEN\CODEINE PHOSPHATE
  6. ALLOPURINOL. [Concomitant]
     Active Substance: ALLOPURINOL
  7. PERINDOPRIL [Concomitant]
     Active Substance: PERINDOPRIL
  8. COLCHICINE. [Concomitant]
     Active Substance: COLCHICINE
  9. BISOPROLOL [Concomitant]
     Active Substance: BISOPROLOL
  10. FUROSEMIDE. [Suspect]
     Active Substance: FUROSEMIDE
     Indication: CARDIAC FAILURE CHRONIC
     Dosage: 40MG OD
     Route: 048
     Dates: start: 20191001
  11. OMEPRAZOLE. [Concomitant]
     Active Substance: OMEPRAZOLE
  12. INDAPAMIDE. [Suspect]
     Active Substance: INDAPAMIDE
     Indication: CARDIAC FAILURE CHRONIC
     Dosage: 2.5MG OD
     Route: 048
     Dates: start: 202104

REACTIONS (5)
  - Toxicity to various agents [Unknown]
  - Product prescribing issue [Unknown]
  - Cardiac arrest [Not Recovered/Not Resolved]
  - Hypokalaemia [Not Recovered/Not Resolved]
  - Bradycardia [Unknown]

NARRATIVE: CASE EVENT DATE: 202107
